FAERS Safety Report 18262932 (Version 1)
Quarter: 2020Q3

REPORT INFORMATION
  Report Type: Spontaneous
  Country: US (occurrence: US)
  Receive Date: 20200914
  Receipt Date: 20200914
  Transmission Date: 20201103
  Serious: No
  Sender: FDA-Public Use
  Company Number: US-JNJFOC-20200907881

PATIENT

DRUGS (1)
  1. DURAGESIC [Suspect]
     Active Substance: FENTANYL
     Indication: PAIN
     Dosage: STRENGTH: 100 MCG/HR
     Route: 062

REACTIONS (2)
  - Pain [Unknown]
  - Walking aid user [Unknown]

NARRATIVE: CASE EVENT DATE: 20200901
